FAERS Safety Report 6882488-X (Version None)
Quarter: 2010Q3

REPORT INFORMATION
  Report Type: 
  Country: None (occurrence: None)
  Receive Date: 20100728
  Receipt Date: 20100728
  Transmission Date: 20110219
  Serious: Yes (Hospitalization)
  Sender: FDA-Public Use
  Company Number: None

PATIENT
  Sex: Male
  Weight: 89.8 kg

DRUGS (2)
  1. CARBOPLATIN [Suspect]
     Dosage: 3295 MG
     Dates: end: 20100713
  2. TAXOL [Suspect]
     Dosage: 1544 MG
     Dates: end: 20100713

REACTIONS (10)
  - COUGH [None]
  - DELIRIUM [None]
  - DYSPNOEA [None]
  - FATIGUE [None]
  - HYPOPHAGIA [None]
  - LEUKOPENIA [None]
  - LYMPHOPENIA [None]
  - NEUTROPHIL COUNT ABNORMAL [None]
  - PLATELET COUNT ABNORMAL [None]
  - PNEUMONIA [None]
